FAERS Safety Report 9753556 (Version 3)
Quarter: 2013Q4

REPORT INFORMATION
  Report Type: Spontaneous
  Country: US (occurrence: US)
  Receive Date: 20131213
  Receipt Date: 20131229
  Transmission Date: 20140711
  Serious: Yes (Hospitalization, Other)
  Sender: FDA-Public Use
  Company Number: US-BRISTOL-MYERS SQUIBB COMPANY-19880525

PATIENT
  Age: 75 Year
  Sex: Male
  Weight: 203 kg

DRUGS (17)
  1. BYETTA [Suspect]
     Dates: start: 2008, end: 20080828
  2. ENALAPRIL MALEATE [Concomitant]
     Dosage: TAB
     Route: 048
  3. HYDROCHLOROTHIAZIDE [Concomitant]
     Dosage: CAP
  4. METFORMIN HCL TABS [Concomitant]
     Indication: DIABETES MELLITUS
     Dosage: 500MG
     Route: 048
  5. LANTUS [Concomitant]
     Indication: DIABETES MELLITUS
     Dosage: 1DF:40 UNITS
  6. HUMALOG [Concomitant]
     Indication: DIABETES MELLITUS
     Dosage: 1DF:50UNITS DAILY
     Route: 058
  7. AMLODIPINE BESYLATE [Concomitant]
     Dosage: 2.5 MG TAB
     Route: 048
  8. URSODIOL [Concomitant]
     Route: 048
  9. NIFEDIPINE [Concomitant]
     Route: 048
  10. AVANDIA [Concomitant]
     Route: 048
  11. GLIPIZIDE [Concomitant]
     Route: 048
  12. COUMADIN [Concomitant]
     Route: 048
  13. INSULIN LISPRO [Concomitant]
     Dosage: 1DF:20-30 UNIT
     Route: 058
  14. NOVOLOG [Concomitant]
     Dosage: NOVOLOG 70/30
  15. PERCOCET [Concomitant]
  16. VANCOMYCIN [Concomitant]
  17. TIMENTIN [Concomitant]

REACTIONS (5)
  - Pancreatitis necrotising [Recovered/Resolved]
  - Deep vein thrombosis [Recovered/Resolved]
  - Multi-organ failure [Unknown]
  - Cholecystitis chronic [Unknown]
  - Cholelithiasis [Unknown]
